FAERS Safety Report 4087605 (Version 3)
Quarter: 2016Q1

REPORT INFORMATION
  Report Type: Spontaneous
  Country: FR (occurrence: FR)
  Receive Date: 20040213
  Receipt Date: 20160108
  Transmission Date: 20160526
  Serious: Yes (Hospitalization, Other)
  Sender: FDA-Public Use
  Company Number: FR-BRISTOL-MYERS SQUIBB COMPANY-12493219

PATIENT
  Age: 0 Day
  Sex: Male

DRUGS (3)
  1. VIDEX [Suspect]
     Active Substance: DIDANOSINE
     Indication: PRODUCT USED FOR UNKNOWN INDICATION
     Dosage: UNK
     Route: 064
  2. COMBIVIR [Suspect]
     Active Substance: LAMIVUDINE\ZIDOVUDINE
     Indication: PRODUCT USED FOR UNKNOWN INDICATION
     Dosage: UNK
     Route: 064
  3. ZIDOVUDINE. [Suspect]
     Active Substance: ZIDOVUDINE
     Indication: PRODUCT USED FOR UNKNOWN INDICATION
     Route: 065

REACTIONS (8)
  - Urinary tract infection [Unknown]
  - Foetal exposure during pregnancy [Unknown]
  - Blood lactic acid increased [Recovered/Resolved]
  - Transaminases increased [Unknown]
  - Hypotonia [Not Recovered/Not Resolved]
  - Gastroenteritis [Unknown]
  - Growth retardation [Not Recovered/Not Resolved]
  - Late developer [Not Recovered/Not Resolved]

NARRATIVE: CASE EVENT DATE: 20020611
